FAERS Safety Report 5357179-7 (Version None)
Quarter: 2007Q2

REPORT INFORMATION
  Report Type: 
  Country: None (occurrence: None)
  Receive Date: 20070614
  Receipt Date: 20070606
  Transmission Date: 20071010
  Serious: Yes (Hospitalization)
  Sender: FDA-Public Use
  Company Number: IT-JNJFOC-20070507012

PATIENT
  Sex: Female
  Weight: 66 kg

DRUGS (2)
  1. DOXORUBICIN HCL [Suspect]
     Indication: OVARIAN CANCER
     Route: 042
  2. VELCADE [Suspect]
     Indication: OVARIAN CANCER
     Route: 042

REACTIONS (4)
  - FUNGAL INFECTION [None]
  - PAIN IN EXTREMITY [None]
  - VERTIGO [None]
  - VOMITING [None]
